FAERS Safety Report 6942221-X (Version None)
Quarter: 2010Q3

REPORT INFORMATION
  Report Type: 
  Country: None (occurrence: None)
  Receive Date: 20100823
  Receipt Date: 20100812
  Transmission Date: 20110219
  Serious: Yes (Hospitalization)
  Sender: FDA-Public Use
  Company Number: 2010US003255

PATIENT
  Age: 61 Year
  Sex: Male
  Weight: 108 kg

DRUGS (4)
  1. PROGRAF [Suspect]
     Indication: RENAL TRANSPLANT
     Dosage: 4 MG BID ORAL
     Route: 048
     Dates: start: 20020224
  2. MYCOPHENOLATE MOFETIL [Concomitant]
  3. PREDNISONE [Concomitant]
  4. NITROGLYCERIN (GLYCERYL TRINITRATE) TABLET [Concomitant]

REACTIONS (3)
  - ARTERIOSCLEROSIS CORONARY ARTERY [None]
  - PULMONARY CONGESTION [None]
  - PULMONARY OEDEMA [None]
